FAERS Safety Report 6667604-7 (Version None)
Quarter: 2010Q2

REPORT INFORMATION
  Report Type: 
  Country: None (occurrence: None)
  Receive Date: 20100405
  Receipt Date: 20100326
  Transmission Date: 20101027
  Serious: Yes (Death, Other)
  Sender: FDA-Public Use
  Company Number: GB-ELI_LILLY_AND_COMPANY-GB201003007241

PATIENT
  Age: 67 Year
  Sex: Female
  Weight: 83 kg

DRUGS (3)
  1. OLANZAPINE [Suspect]
     Indication: BIPOLAR DISORDER
     Dosage: 7.5 MG, DAILY (1/D)
     Route: 048
     Dates: start: 20070410
  2. OLANZAPINE [Suspect]
     Dosage: 5 MG, DAILY (1/D)
     Route: 048
     Dates: start: 20091102
  3. TEGRETOL [Concomitant]
     Indication: BIPOLAR DISORDER
     Dosage: 200 MG, 2/D
     Route: 048
     Dates: start: 20080211

REACTIONS (1)
  - PULMONARY EMBOLISM [None]
